FAERS Safety Report 6687639-8 (Version None)
Quarter: 2010Q2

REPORT INFORMATION
  Report Type: 
  Country: None (occurrence: None)
  Receive Date: 20100415
  Receipt Date: 20100406
  Transmission Date: 20101027
  Serious: Yes (Disabling)
  Sender: FDA-Public Use
  Company Number: 2010US001162

PATIENT
  Age: 54 Year
  Sex: Male

DRUGS (6)
  1. AMEVIVE [Suspect]
     Indication: PSORIASIS
     Dosage: 15 MG, WEEKLY,
     Dates: start: 20100119
  2. FUROSEMIDE [Concomitant]
  3. AMLODIPINE [Concomitant]
  4. GLYBURIDE [Concomitant]
  5. CEPHALEXIN [Concomitant]
  6. SORIATANE [Concomitant]

REACTIONS (4)
  - IMPAIRED WORK ABILITY [None]
  - JOINT SWELLING [None]
  - OEDEMA PERIPHERAL [None]
  - WALKING AID USER [None]
